APPROVED DRUG PRODUCT: CARBAMAZEPINE
Active Ingredient: CARBAMAZEPINE
Strength: 100MG
Dosage Form/Route: CAPSULE, EXTENDED RELEASE;ORAL
Application: A078592 | Product #001 | TE Code: AB
Applicant: TEVA PHARMACEUTICALS USA
Approved: Sep 20, 2012 | RLD: No | RS: No | Type: RX